FAERS Safety Report 10203840 (Version 1)
Quarter: 2014Q2

REPORT INFORMATION
  Report Type: Spontaneous
  Country: US (occurrence: US)
  Receive Date: 20140529
  Receipt Date: 20140529
  Transmission Date: 20141212
  Serious: No
  Sender: FDA-Public Use
  Company Number: US-PFIZER INC-2014146364

PATIENT
  Age: 5 Year
  Sex: Male
  Weight: 22.68 kg

DRUGS (2)
  1. QUILLIVANT XR [Suspect]
     Indication: ATTENTION DEFICIT/HYPERACTIVITY DISORDER
     Dosage: 20 MG/DAY
     Dates: start: 201405, end: 201405
  2. QUILLIVANT XR [Suspect]
     Indication: AUTISM
     Dosage: 12.5 MG/DAY
     Dates: start: 201405

REACTIONS (3)
  - Crying [Not Recovered/Not Resolved]
  - Agitation [Not Recovered/Not Resolved]
  - Aggression [Not Recovered/Not Resolved]
